FAERS Safety Report 19956612 (Version 1)
Quarter: 2021Q4

REPORT INFORMATION
  Report Type: Spontaneous
  Country: JP (occurrence: JP)
  Receive Date: 20211014
  Receipt Date: 20211014
  Transmission Date: 20220303
  Serious: Yes (Other)
  Sender: FDA-Public Use
  Company Number: JP-BAYER-2021-182055

PATIENT
  Age: 64 Year
  Sex: Female
  Weight: 61 kg

DRUGS (2)
  1. STIVARGA [Suspect]
     Active Substance: REGORAFENIB
     Indication: Colon cancer recurrent
     Dosage: 120MG
     Route: 048
     Dates: start: 20210422, end: 20210501
  2. LEVOFLOXACIN [Suspect]
     Active Substance: LEVOFLOXACIN
     Indication: Cholangitis infective
     Dates: start: 20210501

REACTIONS (15)
  - Cholangitis [Recovered/Resolved]
  - Hepatic function abnormal [Recovered/Resolved]
  - Platelet count decreased [Recovered/Resolved]
  - Hypersensitivity [Recovered/Resolved]
  - Pyrexia [Recovered/Resolved]
  - Haematuria [None]
  - Off label use [None]
  - Urticaria [Recovered/Resolved]
  - Erythema [Recovered/Resolved]
  - Alanine aminotransferase increased [Recovered/Resolved]
  - Bilirubin conjugated increased [Recovered/Resolved]
  - Aspartate aminotransferase increased [Recovered/Resolved]
  - Blood bilirubin increased [Recovered/Resolved]
  - Blood alkaline phosphatase increased [Recovered/Resolved]
  - Dyspnoea [Recovered/Resolved]

NARRATIVE: CASE EVENT DATE: 20210422
